FAERS Safety Report 7028200-5 (Version None)
Quarter: 2010Q4

REPORT INFORMATION
  Report Type: 
  Country: None (occurrence: None)
  Receive Date: 20101005
  Receipt Date: 20100927
  Transmission Date: 20110411
  Serious: Yes (Death, Life-Threatening)
  Sender: FDA-Public Use
  Company Number: CN-BRACCO-000184

PATIENT
  Age: 76 Year
  Sex: Male

DRUGS (2)
  1. IOPAMIRO [Suspect]
     Indication: ANGIOGRAM
     Dates: start: 20100917, end: 20100917
  2. IOPAMIRO [Suspect]
     Indication: CORONARY ARTERY DISEASE
     Dates: start: 20100917, end: 20100917

REACTIONS (1)
  - SHOCK [None]
